FAERS Safety Report 4555335-9 (Version None)
Quarter: 2004Q4

REPORT INFORMATION
  Report Type: 
  Country: None (occurrence: None)
  Receive Date: 20041217
  Receipt Date: 20041018
  Transmission Date: 20050328
  Serious: No
  Sender: FDA-Public Use
  Company Number: 2004-BP-10417BP

PATIENT
  Age: 43 Year
  Sex: Male

DRUGS (8)
  1. SPIRIVA [Suspect]
     Indication: CHRONIC OBSTRUCTIVE AIRWAYS DISEASE
     Dosage: 18 MCG (18 MCG), IH
     Route: 055
     Dates: start: 20040924
  2. COUMADIN [Concomitant]
  3. SINGULAIR [Concomitant]
  4. VICODIN [Concomitant]
  5. ALBUTEROL [Concomitant]
  6. NEURONTIN [Concomitant]
  7. ADVAIR (SERETIDE MITE) [Concomitant]
  8. CPAP [Concomitant]

REACTIONS (3)
  - ASTHMA [None]
  - COUGH [None]
  - DYSPNOEA [None]
